FAERS Safety Report 5238272-6 (Version None)
Quarter: 2007Q1

REPORT INFORMATION
  Report Type: 
  Country: None (occurrence: None)
  Receive Date: 20070209
  Receipt Date: 20070209
  Transmission Date: 20070707
  Serious: Yes (Death)
  Sender: FDA-Public Use
  Company Number: None

PATIENT
  Sex: Male
  Weight: 102.5129 kg

DRUGS (1)
  1. DEXFERRUM [Suspect]
     Indication: ANAEMIA
     Dosage: 25 MG -0.5 ML- ONCE OVER 15 MIN. IV
     Route: 042
     Dates: start: 20070207, end: 20070207

REACTIONS (3)
  - INFUSION RELATED REACTION [None]
  - RESPIRATORY ARREST [None]
  - RESPIRATORY DISTRESS [None]
